FAERS Safety Report 7744363-8 (Version None)
Quarter: 2011Q3

REPORT INFORMATION
  Report Type: 
  Country: None (occurrence: None)
  Receive Date: 20110912
  Receipt Date: 20110901
  Transmission Date: 20111222
  Serious: Yes (Other)
  Sender: FDA-Public Use
  Company Number: US-ASTRAZENECA-2010SE13086

PATIENT
  Age: 64 Year
  Sex: Female

DRUGS (2)
  1. CRESTOR [Suspect]
     Dosage: TOTAL DAILY DOSE OF 20 MG
     Route: 048
  2. NEXIUM [Suspect]
     Dosage: TOTAL DAILY DOSE OF 40 MG
     Route: 048

REACTIONS (3)
  - MYOCARDIAL INFARCTION [None]
  - TENDON INJURY [None]
  - LIMB CRUSHING INJURY [None]
